FAERS Safety Report 8799085 (Version 1)
Quarter: 2012Q4

REPORT INFORMATION
  Report Type: 
  Country: US (occurrence: US)
  Receive Date: 20120920
  Receipt Date: 20120920
  Transmission Date: 20130627
  Serious: No
  Sender: FDA-Public Use
  Company Number: US-ASTRAZENECA-2011SE62323

PATIENT
  Age: 62 Year
  Sex: Female
  Weight: 66.2 kg

DRUGS (14)
  1. LISINOPRIL [Suspect]
     Route: 048
  2. METOPROLOL [Suspect]
     Route: 048
  3. PROPANOLOL [Suspect]
     Route: 065
  4. CRESTOR [Suspect]
     Route: 048
     Dates: start: 2011, end: 2011
  5. NIASPAN [Suspect]
     Indication: LOW DENSITY LIPOPROTEIN INCREASED
     Route: 065
     Dates: start: 2011, end: 2011
  6. NIASPAN [Suspect]
     Indication: LOW DENSITY LIPOPROTEIN INCREASED
     Route: 048
     Dates: start: 2011
  7. SIMCOR [Suspect]
     Route: 065
     Dates: start: 2011, end: 2011
  8. LIPITOR [Suspect]
     Route: 065
     Dates: start: 2011
  9. TRIAMPTERENE [Concomitant]
     Dosage: 37.5/25 MG DAILY
     Route: 048
  10. VERAPAMIL [Concomitant]
     Route: 048
  11. LEVOTHYROXINE SODIUM [Concomitant]
     Dosage: 200 MCG, 6 IN ONE WEEK
     Route: 048
  12. ANOVLAR [Concomitant]
     Dosage: 0.5 MG/1.5 MCG
     Route: 048
  13. ACETYLSALICYCLIC ACID [Concomitant]
     Route: 048
  14. LATANOPROST [Concomitant]
     Route: 047

REACTIONS (8)
  - Flushing [Recovered/Resolved]
  - Joint swelling [Not Recovered/Not Resolved]
  - Cough [Unknown]
  - Pruritus [Unknown]
  - Drug hypersensitivity [Unknown]
  - Constipation [Unknown]
  - Paraesthesia oral [Unknown]
  - Rash [Unknown]
